FAERS Safety Report 7685545-3 (Version None)
Quarter: 2011Q3

REPORT INFORMATION
  Report Type: 
  Country: None (occurrence: None)
  Receive Date: 20110816
  Receipt Date: 20110814
  Transmission Date: 20111222
  Serious: Yes (Other)
  Sender: FDA-Public Use
  Company Number: US-PFIZER INC-2011141306

PATIENT
  Sex: Male
  Weight: 82.5 kg

DRUGS (10)
  1. MORPHINE [Concomitant]
     Indication: PAIN
     Dosage: 60 MG, 3X/DAY
  2. ASPIRIN [Concomitant]
     Dosage: UNK
  3. PRILOSEC [Concomitant]
     Dosage: UNK
     Route: 048
  4. COUMADIN [Concomitant]
     Dosage: 50 MG, UNK
     Route: 048
  5. CELEXA [Concomitant]
     Indication: DEPRESSION
     Dosage: 20 MG, UNK
     Route: 048
  6. CHANTIX [Suspect]
     Indication: SMOKING CESSATION THERAPY
     Dosage: UNK
     Route: 048
     Dates: start: 20100301
  7. LIPITOR [Concomitant]
     Indication: BLOOD CHOLESTEROL ABNORMAL
     Dosage: 20 MG, DAILY
     Route: 048
  8. LASIX [Concomitant]
     Dosage: 40 MG, EVERY OTHER DAY
     Route: 048
  9. PLAVIX [Concomitant]
     Indication: ANTICOAGULANT THERAPY
     Dosage: 25 MG, DAILY
     Route: 048
  10. POTASSIUM [Concomitant]
     Dosage: 10 MG, THREE TIMES EVERY OTHER DAY
     Route: 048

REACTIONS (3)
  - DRUG INEFFECTIVE [None]
  - DRUG DISPENSING ERROR [None]
  - BLOOD PRESSURE FLUCTUATION [None]
